FAERS Safety Report 8100372-0 (Version None)
Quarter: 2012Q1

REPORT INFORMATION
  Report Type: 
  Country: None (occurrence: None)
  Receive Date: 20120129
  Receipt Date: 20111128
  Transmission Date: 20120608
  Serious: No
  Sender: FDA-Public Use
  Company Number: US-ABBOTT-11P-163-0877987-00

PATIENT
  Age: 54 Year
  Sex: Male

DRUGS (5)
  1. ALLOPURINOL [Concomitant]
     Indication: GOUT
  2. STOOL SOFTENER [Concomitant]
     Indication: PRODUCT USED FOR UNKNOWN INDICATION
  3. FOLIC ACID [Concomitant]
     Indication: PRODUCT USED FOR UNKNOWN INDICATION
     Dosage: 1 MG DAILY
  4. HUMIRA [Suspect]
     Indication: PSORIASIS
     Dates: start: 20110701
  5. NEXIUM [Concomitant]
     Indication: PRODUCT USED FOR UNKNOWN INDICATION
     Dosage: AT BEDTIME

REACTIONS (11)
  - RESTLESS LEGS SYNDROME [None]
  - PAIN IN EXTREMITY [None]
  - FATIGUE [None]
  - SOMNOLENCE [None]
  - SLEEP DISORDER [None]
  - SKIN FISSURES [None]
  - HAEMORRHAGE [None]
  - THROMBOSIS [None]
  - ABNORMAL DREAMS [None]
  - HAEMORRHOIDS [None]
  - HEADACHE [None]
